FAERS Safety Report 21027388 (Version 1)
Quarter: 2022Q2

REPORT INFORMATION
  Report Type: Spontaneous
  Country: US (occurrence: None)
  Receive Date: 20220629
  Receipt Date: 20220629
  Transmission Date: 20220720
  Serious: No
  Sender: FDA-Public Use
  Company Number: None

PATIENT
  Age: 40 Year
  Sex: Male
  Weight: 86.4 kg

DRUGS (17)
  1. CLINDAMYCIN [Suspect]
     Active Substance: CLINDAMYCIN
  2. BENZOYL PEROXIDE [Suspect]
     Active Substance: BENZOYL PEROXIDE
  3. ACYCLOVIR [Concomitant]
     Active Substance: ACYCLOVIR
  4. GABAPENTIN [Concomitant]
     Active Substance: GABAPENTIN
  5. METRONIDAZOLE [Concomitant]
     Active Substance: METRONIDAZOLE
  6. TRETINOIN [Concomitant]
     Active Substance: TRETINOIN
  7. TRIAMCINOLONE [Concomitant]
     Active Substance: TRIAMCINOLONE
  8. DULOXETINE [Concomitant]
     Active Substance: DULOXETINE
  9. AMMONIUM LACTATE [Concomitant]
     Active Substance: AMMONIUM LACTATE
  10. BIKTARVY [Concomitant]
     Active Substance: BICTEGRAVIR SODIUM\EMTRICITABINE\TENOFOVIR ALAFENAMIDE FUMARATE
  11. MEDIPLAST [Concomitant]
     Active Substance: SALICYLIC ACID
  12. SALICYLIC ACID [Concomitant]
     Active Substance: SALICYLIC ACID
  13. KETOCONAZOLE [Concomitant]
     Active Substance: KETOCONAZOLE
  14. BENZOYL PEROXIDE [Concomitant]
     Active Substance: BENZOYL PEROXIDE
  15. liquid Tecrolimus [Concomitant]
  16. ECONAZOLE [Concomitant]
     Active Substance: ECONAZOLE
  17. FLUOROURACIL [Concomitant]
     Active Substance: FLUOROURACIL

REACTIONS (1)
  - Drug dispensed to wrong patient [None]

NARRATIVE: CASE EVENT DATE: 20220629
